FAERS Safety Report 9332719 (Version 2)
Quarter: 2013Q2

REPORT INFORMATION
  Report Type: Spontaneous
  Country: US (occurrence: US)
  Receive Date: 20130606
  Receipt Date: 20130626
  Transmission Date: 20140414
  Serious: No
  Sender: FDA-Public Use
  Company Number: US-PFIZER INC-2013168108

PATIENT
  Age: 78 Year
  Sex: Female

DRUGS (16)
  1. SUTENT [Suspect]
     Dosage: 37.5 MG, 1X/DAY (37.5MG DAILY FOR 28 DAYS ON AND 14 DAYS OFF )
     Dates: start: 20130518
  2. ATROVENT [Concomitant]
     Dosage: UNK
  3. COMBIVENT [Concomitant]
     Dosage: UNK
  4. XARELTO [Concomitant]
     Dosage: UNK
  5. XANAX [Concomitant]
     Dosage: UNK
  6. LANTUS INSULIN [Concomitant]
     Dosage: UNK
  7. TYLENOL #3 [Concomitant]
     Dosage: UNK
  8. FLONASE [Concomitant]
     Dosage: UNK
  9. VITAMIN D3 [Concomitant]
     Dosage: UNK
  10. PRAVACHOL [Concomitant]
  11. LASIX [Concomitant]
     Dosage: UNK
  12. LANOXIN [Concomitant]
     Dosage: UNK
  13. CARDIAZEM [Concomitant]
     Dosage: UNK
  14. MAGNESIUM [Concomitant]
     Dosage: UNK
  15. POTASSIUM [Concomitant]
     Dosage: UNK
  16. OXYGEN [Concomitant]
     Dosage: UNK

REACTIONS (14)
  - Fatigue [Unknown]
  - Dysgeusia [Unknown]
  - Abdominal pain [Unknown]
  - Decreased appetite [Unknown]
  - Nausea [Unknown]
  - Abdominal discomfort [Unknown]
  - Blood urine present [Recovered/Resolved]
  - Blood glucose decreased [Unknown]
  - Anaemia [Unknown]
  - Oral pain [Unknown]
  - Glossodynia [Unknown]
  - Gingival pain [Unknown]
  - Tongue disorder [Unknown]
  - Decreased appetite [Unknown]
